FAERS Safety Report 25360419 (Version 1)
Quarter: 2025Q2

REPORT INFORMATION
  Report Type: Spontaneous
  Country: CA (occurrence: CA)
  Receive Date: 20250527
  Receipt Date: 20250527
  Transmission Date: 20250716
  Serious: Yes (Other)
  Sender: ALKEM
  Company Number: CA-ALKEM LABORATORIES LIMITED-CA-ALKEM-2025-04865

PATIENT
  Age: 10 Month
  Sex: Male

DRUGS (2)
  1. TACROLIMUS [Suspect]
     Active Substance: TACROLIMUS
     Indication: Immunosuppressant drug therapy
     Route: 065
  2. MYCOPHENOLATE MOFETIL [Suspect]
     Active Substance: MYCOPHENOLATE MOFETIL
     Indication: Immunosuppressant drug therapy
     Route: 065

REACTIONS (6)
  - Crohn^s disease [Recovered/Resolved]
  - Graft complication [Recovered/Resolved]
  - Transplant rejection [Recovered/Resolved]
  - Transplant failure [Unknown]
  - Anal abscess [Recovered/Resolved]
  - Drug level below therapeutic [Recovered/Resolved]
